FAERS Safety Report 7226649-9 (Version None)
Quarter: 2011Q1

REPORT INFORMATION
  Report Type: 
  Country: None (occurrence: None)
  Receive Date: 20110114
  Receipt Date: 20110106
  Transmission Date: 20110831
  Serious: Yes (Death)
  Sender: FDA-Public Use
  Company Number: US-CELGENEUS-163-21880-10121402

PATIENT
  Sex: Male

DRUGS (2)
  1. REVLIMID [Suspect]
     Route: 048
     Dates: start: 20101103
  2. DACOGEN [Concomitant]
     Route: 048
     Dates: start: 20100731, end: 20101105

REACTIONS (1)
  - NEUROLOGICAL DECOMPENSATION [None]
